FAERS Safety Report 4798880-3 (Version None)
Quarter: 2005Q4

REPORT INFORMATION
  Report Type: 
  Country: None (occurrence: None)
  Receive Date: 20051014
  Receipt Date: 20050927
  Transmission Date: 20060501
  Serious: No
  Sender: FDA-Public Use
  Company Number: DE-GLAXOSMITHKLINE-D0047611A

PATIENT
  Age: 81 Year
  Sex: Male

DRUGS (5)
  1. AVODART [Suspect]
     Indication: BENIGN PROSTATIC HYPERPLASIA
     Dosage: .5MG SINGLE DOSE
     Route: 048
     Dates: start: 20050210, end: 20050921
  2. KARVEA [Concomitant]
     Route: 048
  3. SOTALOL HCL [Concomitant]
     Dosage: 80MG TWICE PER DAY
     Route: 048
  4. BLEMINOL [Concomitant]
     Route: 065
  5. ASPIRIN [Concomitant]
     Dosage: 100MG PER DAY
     Route: 048

REACTIONS (2)
  - BREAST PAIN [None]
  - GYNAECOMASTIA [None]
